FAERS Safety Report 15852086 (Version 1)
Quarter: 2019Q1

REPORT INFORMATION
  Report Type: Spontaneous
  Country: GB (occurrence: GB)
  Receive Date: 20190122
  Receipt Date: 20190122
  Transmission Date: 20190417
  Serious: Yes (Hospitalization)
  Sender: FDA-Public Use
  Company Number: GB-GW PHARMA-201901GBGW0106

PATIENT

DRUGS (1)
  1. EPIDIOLEX [Suspect]
     Active Substance: CANNABIDIOL
     Indication: EPILEPSY
     Dosage: UNK
     Route: 048

REACTIONS (11)
  - Drug ineffective [Unknown]
  - Somnolence [Unknown]
  - Status epilepticus [Recovered/Resolved]
  - Fall [Unknown]
  - Generalised tonic-clonic seizure [Unknown]
  - Gait disturbance [Unknown]
  - Speech disorder [Unknown]
  - Asthenia [Unknown]
  - Tonsillitis [Unknown]
  - Seizure [Recovered/Resolved]
  - Feeding disorder [Unknown]

NARRATIVE: CASE EVENT DATE: 20180105
